FAERS Safety Report 10153264 (Version 1)
Quarter: 2014Q2

REPORT INFORMATION
  Report Type: Spontaneous
  Country: KR (occurrence: KR)
  Receive Date: 20140505
  Receipt Date: 20140505
  Transmission Date: 20141212
  Serious: Yes (Other)
  Sender: FDA-Public Use
  Company Number: KR-BAXTER-2014BAX020649

PATIENT
  Age: 66 Year
  Sex: Male
  Weight: 66.5 kg

DRUGS (5)
  1. EXTRANEAL [Suspect]
     Indication: RENAL FAILURE CHRONIC
     Route: 033
  2. PHYSIONEAL 1.5% [Suspect]
     Indication: RENAL FAILURE CHRONIC
     Route: 033
  3. PHYSIONEAL 1.5% [Suspect]
     Indication: PERITONEAL DIALYSIS
  4. PHYSIONEAL 2.5% [Suspect]
     Indication: RENAL FAILURE CHRONIC
     Route: 033
  5. PHYSIONEAL 2.5% [Suspect]
     Indication: PERITONEAL DIALYSIS

REACTIONS (2)
  - Upper limb fracture [Not Recovered/Not Resolved]
  - Fall [Unknown]
